FAERS Safety Report 8601464-X (Version None)
Quarter: 2012Q3

REPORT INFORMATION
  Report Type: 
  Country: None (occurrence: None)
  Receive Date: 20120806
  Receipt Date: 20120806
  Transmission Date: 20120928
  Serious: No
  Sender: FDA-Public Use
  Company Number: None

PATIENT
  Sex: Male

DRUGS (2)
  1. CLOPIDOGREL [Suspect]
     Indication: CORONARY ARTERY DISEASE
     Dosage: CLOPIDOGREL 75MG PO DAILY
     Route: 048
     Dates: start: 20120615, end: 20120622
  2. CLOPIDOGREL [Suspect]
     Indication: PERCUTANEOUS CORONARY INTERVENTION
     Dosage: CLOPIDOGREL 75MG PO DAILY
     Route: 048
     Dates: start: 20120615, end: 20120622

REACTIONS (4)
  - NAUSEA [None]
  - PRODUCT SUBSTITUTION ISSUE [None]
  - DIARRHOEA [None]
  - DRUG INTOLERANCE [None]
